FAERS Safety Report 11667164 (Version 1)
Quarter: 2015Q4

REPORT INFORMATION
  Report Type: Spontaneous
  Country: US (occurrence: US)
  Receive Date: 20151027
  Receipt Date: 20151027
  Transmission Date: 20160304
  Serious: No
  Sender: FDA-Public Use
  Company Number: US-ELI_LILLY_AND_COMPANY-US201002005319

PATIENT
  Age: 67 Year
  Sex: Female

DRUGS (2)
  1. FORTEO [Suspect]
     Active Substance: TERIPARATIDE
     Dosage: 20 UG, DAILY (1/D)
     Dates: start: 201001, end: 20100215
  2. FORTEO [Suspect]
     Active Substance: TERIPARATIDE
     Indication: OSTEOPOROSIS
     Dosage: 20 UG, DAILY (1/D)
     Dates: start: 20100108, end: 201001

REACTIONS (9)
  - Malaise [Not Recovered/Not Resolved]
  - Reaction to food additive [Unknown]
  - Arthralgia [Unknown]
  - Nausea [Unknown]
  - Feeling abnormal [Unknown]
  - Gastrooesophageal reflux disease [Unknown]
  - Pain in extremity [Unknown]
  - Groin pain [Unknown]
  - Asthenia [Unknown]

NARRATIVE: CASE EVENT DATE: 201001
